FAERS Safety Report 4944273-5 (Version None)
Quarter: 2006Q1

REPORT INFORMATION
  Report Type: 
  Country: None (occurrence: None)
  Receive Date: 20060315
  Receipt Date: 20060224
  Transmission Date: 20060701
  Serious: Yes (Other)
  Sender: FDA-Public Use
  Company Number: US-GLAXOSMITHKLINE-A0595133A

PATIENT
  Age: 29 Year
  Sex: Male

DRUGS (5)
  1. LAMICTAL [Suspect]
     Indication: BIPOLAR DISORDER
     Dosage: 25MG PER DAY
     Route: 048
     Dates: start: 20051220
  2. WELLBUTRIN XL [Concomitant]
     Indication: DEPRESSION
     Dosage: 200MG PER DAY
     Route: 048
     Dates: start: 19971001
  3. ZYRTEC [Concomitant]
     Route: 048
  4. ALLEGRA [Concomitant]
     Route: 048
  5. LUNESTA [Concomitant]
     Indication: INSOMNIA
     Route: 048
     Dates: start: 20051220

REACTIONS (2)
  - RASH [None]
  - STAPHYLOCOCCAL INFECTION [None]
